FAERS Safety Report 8499854-1 (Version None)
Quarter: 2012Q3

REPORT INFORMATION
  Report Type: 
  Country: None (occurrence: None)
  Receive Date: 20120710
  Receipt Date: 20120703
  Transmission Date: 20120928
  Serious: Yes (Hospitalization)
  Sender: FDA-Public Use
  Company Number: US-PFIZER INC-2012161364

PATIENT
  Sex: Male

DRUGS (3)
  1. ACCUPRIL [Suspect]
     Dosage: 20 MG, 2X/DAY (1, 2 TIMES A DAY)
  2. NORVASC [Suspect]
     Dosage: 10 MG, 1X/DAY, (1, ONCE A DAY)
  3. LIPITOR [Suspect]
     Dosage: 10 MG, 1X/DAY (1, ONCE A DAY )

REACTIONS (1)
  - CEREBROVASCULAR ACCIDENT [None]
